FAERS Safety Report 10213718 (Version 2)
Quarter: 2014Q2

REPORT INFORMATION
  Report Type: Spontaneous
  Country: US (occurrence: None)
  Receive Date: 20140530
  Receipt Date: 20140610
  Transmission Date: 20141212
  Serious: Yes (Hospitalization)
  Sender: FDA-Public Use
  Company Number: 2014RT000057

PATIENT
  Age: 15 Year
  Sex: Male
  Weight: 40.8 kg

DRUGS (1)
  1. PROCYSBI [Suspect]
     Indication: CYSTINOSIS
     Route: 048
     Dates: start: 201309

REACTIONS (2)
  - Disease progression [None]
  - Cystinosis [None]
